FAERS Safety Report 21250032 (Version 2)
Quarter: 2022Q3

REPORT INFORMATION
  Report Type: Spontaneous
  Country: JP (occurrence: JP)
  Receive Date: 20220824
  Receipt Date: 20220825
  Transmission Date: 20221027
  Serious: Yes (Life-Threatening, Other)
  Sender: FDA-Public Use
  Company Number: JP-PFIZER INC-PV202200042912

PATIENT
  Age: 82 Year
  Sex: Female

DRUGS (2)
  1. DOCETAXEL [Suspect]
     Active Substance: DOCETAXEL
     Indication: Stewart-Treves syndrome
     Dosage: 2 MONTHLY CYCLES, 75 MG MG/BODY ON DAY 1
  2. ALDESLEUKIN [Suspect]
     Active Substance: ALDESLEUKIN
     Indication: Stewart-Treves syndrome
     Dosage: 700000 UNITS/BODY ON DAYS 1-5, 2 MONTH CYCLE

REACTIONS (3)
  - Leukopenia [Unknown]
  - Dermatitis [Unknown]
  - Anaemia [Unknown]
